FAERS Safety Report 18375863 (Version 1)
Quarter: 2020Q4

REPORT INFORMATION
  Report Type: Spontaneous
  Country: US (occurrence: US)
  Receive Date: 20201009
  Receipt Date: 20201009
  Transmission Date: 20210114
  Serious: Yes (Other)
  Sender: FDA-Public Use
  Company Number: None

PATIENT
  Age: 52 Year
  Sex: Female
  Weight: 85.5 kg

DRUGS (5)
  1. REMICADE [Suspect]
     Active Substance: INFLIXIMAB
     Indication: PSORIATIC ARTHROPATHY
     Route: 042
  2. METHOTREXATE 2.5MG [Concomitant]
     Active Substance: METHOTREXATE
     Dosage: TAKE 4 TABLETS WEEKLY
  3. SUPER B COMPLEX [Concomitant]
     Active Substance: CYANOCOBALAMIN\DEXPANTHENOL\NIACINAMIDE\PYRIDOXINE HYDROCHLORIDE\RIBOFLAVIN 5^-PHOSPHATE SODIUM\THIAMINE HYDROCHLORIDE\VITAMIN B COMPLEX
  4. ONE-A-DAY NOS [Concomitant]
     Active Substance: MINERALS\VITAMINS
  5. CALCIUM 60MG W / D [Concomitant]

REACTIONS (3)
  - Infusion related reaction [None]
  - Headache [None]
  - Drug ineffective [None]

NARRATIVE: CASE EVENT DATE: 20201009
